FAERS Safety Report 16847675 (Version 4)
Quarter: 2024Q1

REPORT INFORMATION
  Report Type: Spontaneous
  Country: US (occurrence: US)
  Receive Date: 20190924
  Receipt Date: 20240213
  Transmission Date: 20240410
  Serious: No
  Sender: FDA-Public Use
  Company Number: US-ACORDA-ACO_160887_2019

PATIENT
  Age: 50 Year
  Sex: Female

DRUGS (5)
  1. INBRIJA [Suspect]
     Active Substance: LEVODOPA
     Indication: On and off phenomenon
     Dosage: 42 MILLIGRAM, 2 CAPSULES, NOT TO EXCEED 5 DOSES A DAY
     Dates: start: 201906, end: 201908
  2. INBRIJA [Suspect]
     Active Substance: LEVODOPA
     Indication: Parkinson^s disease
     Dosage: 2 DOSAGE FORM, PRN, (NOT TO EXCEED 5 DOSES A DAY)
  3. INBRIJA [Suspect]
     Active Substance: LEVODOPA
     Dosage: 2 DOSAGE FORM, PRN, (NOT TO EXCEED 5 DOSES A DAY)
  4. CARBIDOPA\LEVODOPA [Concomitant]
     Active Substance: CARBIDOPA\LEVODOPA
     Indication: Product used for unknown indication
     Dosage: 2500 MILLIGRAM, Q 3 HRS
     Route: 065
  5. CARBIDOPA\LEVODOPA [Concomitant]
     Active Substance: CARBIDOPA\LEVODOPA
     Dosage: 2500 MILLIGRAM, SLOW REALEASE AT NIGHT
     Route: 065

REACTIONS (5)
  - Product residue present [Unknown]
  - Drug ineffective [Unknown]
  - Therapeutic product effect decreased [Unknown]
  - Incorrect dose administered [Unknown]
  - Cough [Unknown]

NARRATIVE: CASE EVENT DATE: 20190701
